FAERS Safety Report 11179959 (Version 1)
Quarter: 2015Q2

REPORT INFORMATION
  Report Type: Spontaneous
  Country: US (occurrence: US)
  Receive Date: 20150611
  Receipt Date: 20150611
  Transmission Date: 20150821
  Serious: No
  Sender: FDA-Public Use
  Company Number: US-TEVA-551245USA

PATIENT
  Age: 56 Year
  Sex: Female

DRUGS (2)
  1. XELODA [Suspect]
     Active Substance: CAPECITABINE
     Route: 065
  2. CAPECITABINE. [Suspect]
     Active Substance: CAPECITABINE
     Indication: CHEMOTHERAPY
     Route: 048
     Dates: start: 20150224

REACTIONS (3)
  - Flatulence [Unknown]
  - Decreased appetite [Unknown]
  - Dyspepsia [Unknown]
